FAERS Safety Report 8239204-9 (Version None)
Quarter: 2012Q1

REPORT INFORMATION
  Report Type: 
  Country: None (occurrence: None)
  Receive Date: 20120328
  Receipt Date: 20120320
  Transmission Date: 20120608
  Serious: No
  Sender: FDA-Public Use
  Company Number: US-BIOGENIDEC-2012BI009791

PATIENT
  Age: 46 Year
  Sex: Female

DRUGS (1)
  1. TYSABRI [Suspect]
     Indication: MULTIPLE SCLEROSIS
     Route: 042
     Dates: start: 20101215

REACTIONS (7)
  - DIZZINESS [None]
  - FALL [None]
  - LACERATION [None]
  - MUSCULAR WEAKNESS [None]
  - CONTUSION [None]
  - BALANCE DISORDER [None]
  - SKELETAL INJURY [None]
